FAERS Safety Report 14519300 (Version 1)
Quarter: 2018Q1

REPORT INFORMATION
  Report Type: Spontaneous
  Country: FR (occurrence: FR)
  Receive Date: 20180212
  Receipt Date: 20180212
  Transmission Date: 20180509
  Serious: Yes (Life-Threatening, Other)
  Sender: FDA-Public Use
  Company Number: FR-PFIZER INC-2018056256

PATIENT
  Age: 71 Year
  Sex: Female
  Weight: 69 kg

DRUGS (1)
  1. OXALIPLATIN. [Suspect]
     Active Substance: OXALIPLATIN
     Indication: RECTAL ADENOCARCINOMA
     Dosage: UNK
     Route: 041
     Dates: start: 20161229, end: 20161229

REACTIONS (3)
  - Thrombocytopenia [Recovered/Resolved]
  - Haemorrhage [Recovered/Resolved]
  - Malaise [Recovered/Resolved]

NARRATIVE: CASE EVENT DATE: 20161229
